FAERS Safety Report 4522394-9 (Version None)
Quarter: 2004Q4

REPORT INFORMATION
  Report Type: 
  Country: None (occurrence: None)
  Receive Date: 20041209
  Receipt Date: 20041202
  Transmission Date: 20050328
  Serious: Yes (Other)
  Sender: FDA-Public Use
  Company Number: PHRM2004FR03536

PATIENT
  Age: 64 Year
  Sex: Female

DRUGS (1)
  1. TRILEPTAL [Suspect]
     Indication: PAIN
     Dosage: 300 MG, BID
     Route: 048
     Dates: start: 20040101

REACTIONS (1)
  - POSTMENOPAUSAL HAEMORRHAGE [None]
